FAERS Safety Report 8540209-9 (Version None)
Quarter: 2012Q3

REPORT INFORMATION
  Report Type: 
  Country: None (occurrence: None)
  Receive Date: 20120726
  Receipt Date: 20120720
  Transmission Date: 20120928
  Serious: No
  Sender: FDA-Public Use
  Company Number: US-B.I. PHARMACEUTICALS,INC./RIDGEFIELD-2012-BP-16247BP

PATIENT
  Sex: Female

DRUGS (7)
  1. SPIRIVA [Suspect]
     Indication: DYSPNOEA
     Dosage: 18 MCG
     Route: 055
     Dates: start: 20120515
  2. ADVAIR DISKUS 100/50 [Concomitant]
     Indication: DYSPNOEA
     Route: 055
     Dates: start: 20120515, end: 20120529
  3. BENICAR [Concomitant]
     Indication: HYPERTENSION
     Dosage: 40 MG
     Route: 048
  4. ZIAC [Concomitant]
     Indication: FLUID RETENTION
     Dosage: 12.5 MG
     Route: 048
  5. TRAVATAN [Concomitant]
     Indication: GLAUCOMA
  6. ZOCOR [Concomitant]
     Indication: ARTERIAL DISORDER
     Dosage: 40 MG
     Route: 048
  7. PROCARDIA [Concomitant]
     Indication: BLOOD PRESSURE
     Dosage: 120 MG
     Route: 048

REACTIONS (3)
  - JOINT SWELLING [None]
  - CONSTIPATION [None]
  - ERYTHEMA [None]
